FAERS Safety Report 24614396 (Version 1)
Quarter: 2024Q4

REPORT INFORMATION
  Report Type: Spontaneous
  Country: BE (occurrence: BE)
  Receive Date: 20241113
  Receipt Date: 20241113
  Transmission Date: 20250115
  Serious: Yes (Hospitalization, Other)
  Sender: AMGEN
  Company Number: BE-AMGEN-BELSP2024222616

PATIENT
  Age: 65 Year
  Sex: Female

DRUGS (8)
  1. ADALIMUMAB [Suspect]
     Active Substance: ADALIMUMAB
     Indication: Psoriasis
     Dosage: UNK
     Route: 065
  2. ADALIMUMAB [Suspect]
     Active Substance: ADALIMUMAB
     Indication: Psoriatic arthropathy
  3. APREMILAST [Suspect]
     Active Substance: APREMILAST
     Indication: Psoriatic arthropathy
     Dosage: 30 MILLIGRAM, BID
     Route: 065
  4. SECUKINUMAB [Concomitant]
     Active Substance: SECUKINUMAB
     Dosage: 300 MILLIGRAM, Q4WK
  5. METHOTREXATE [Concomitant]
     Active Substance: METHOTREXATE
  6. PREDNISOLONE [Concomitant]
     Active Substance: PREDNISOLONE
     Dosage: 6 MILLIGRAM
  7. AZATHIOPRINE [Concomitant]
     Active Substance: AZATHIOPRINE
  8. BECLOMETHASONE [Concomitant]
     Active Substance: BECLOMETHASONE

REACTIONS (5)
  - Colitis ulcerative [Unknown]
  - Febrile neutropenia [Unknown]
  - Sinusitis [Unknown]
  - Psoriatic arthropathy [Recovered/Resolved]
  - Psoriasis [Recovering/Resolving]
